FAERS Safety Report 20942802 (Version 1)
Quarter: 2022Q2

REPORT INFORMATION
  Report Type: Spontaneous
  Country: AU (occurrence: AU)
  Receive Date: 20220610
  Receipt Date: 20220610
  Transmission Date: 20220721
  Serious: Yes (Other)
  Sender: FDA-Public Use
  Company Number: AU-SA-2020SA257294

PATIENT
  Sex: Male

DRUGS (3)
  1. DILTIAZEM HYDROCHLORIDE [Suspect]
     Active Substance: DILTIAZEM HYDROCHLORIDE
     Indication: Product used for unknown indication
     Route: 065
  2. IRBESARTAN [Suspect]
     Active Substance: IRBESARTAN
     Indication: Product used for unknown indication
     Route: 065
  3. NEBIVOLOL HYDROCHLORIDE [Suspect]
     Active Substance: NEBIVOLOL HYDROCHLORIDE
     Indication: Product used for unknown indication
     Route: 065

REACTIONS (2)
  - Haemorrhage [Unknown]
  - Pruritus [Unknown]

NARRATIVE: CASE EVENT DATE: 20200917
